FAERS Safety Report 7237712 (Version 2)
Quarter: 2013Q4

REPORT INFORMATION
  Report Type: Spontaneous
  Country: US (occurrence: None)
  Receive Date: 20091217
  Receipt Date: 20131231
  Transmission Date: 20140711
  Serious: Yes (Other)
  Sender: FDA-Public Use
  Company Number: 2009S1008832

PATIENT
  Age: 52 Year
  Sex: Male
  Weight: 72.58 kg

DRUGS (4)
  1. FLEET PHOSPHO-SODA [Suspect]
     Indication: COLONOSCOPY
  2. LISINOPRIL HYDROCHLOROTHIAZIDE (HYDROCHLOROTHIAZIDE, LISINOPRIL) (TABLET) [Concomitant]
  3. ASPIR-LOW (ACETYLSALICYLIC ACID) (81 MILLIGRAM, ENTERIC-COATED TABLET) [Concomitant]
  4. OCUVITE (ASCORBIC ACID, TOCOPHEROL, RETINOL) (TABLET) [Concomitant]

REACTIONS (3)
  - Renal failure chronic [None]
  - Anaemia [None]
  - Hyperparathyroidism [None]
